FAERS Safety Report 8980224 (Version 3)
Quarter: 2013Q2

REPORT INFORMATION
  Report Type: Spontaneous
  Country: JP (occurrence: JP)
  Receive Date: 20121221
  Receipt Date: 20130624
  Transmission Date: 20140414
  Serious: Yes (Hospitalization)
  Sender: FDA-Public Use
  Company Number: JP-ASTRAZENECA-2012SE90187

PATIENT
  Age: 83 Year
  Sex: Male
  Weight: 71 kg

DRUGS (14)
  1. BLOPRESS [Suspect]
     Indication: HYPERTENSION
     Route: 048
     Dates: end: 20121102
  2. LASIX [Suspect]
     Route: 048
     Dates: end: 20121030
  3. SOLETON [Concomitant]
     Route: 048
  4. ZATFERON [Concomitant]
     Route: 048
  5. EPENARD [Concomitant]
     Route: 048
  6. TRYPTANOL [Concomitant]
     Route: 048
  7. LENDORMIN [Concomitant]
     Route: 048
  8. GLIMEPIRIDE [Concomitant]
     Route: 048
  9. ATELEC [Concomitant]
     Route: 048
  10. PIOGLITAZONE HYDROCHLORIDE [Concomitant]
     Route: 048
  11. GAMOFA [Concomitant]
     Route: 048
  12. CILOSTAZOL [Concomitant]
     Route: 048
  13. ADONA [Concomitant]
     Route: 048
  14. PREDNISOLONE [Concomitant]
     Indication: PACHYMENINGITIS
     Route: 048
     Dates: start: 20121019

REACTIONS (3)
  - Hypoaldosteronism [Unknown]
  - Hyponatraemia [Recovering/Resolving]
  - Hyperkalaemia [Recovering/Resolving]
